FAERS Safety Report 8459599-0 (Version None)
Quarter: 2012Q2

REPORT INFORMATION
  Report Type: 
  Country: None (occurrence: None)
  Receive Date: 20120622
  Receipt Date: 20120614
  Transmission Date: 20120825
  Serious: Yes (Hospitalization)
  Sender: FDA-Public Use
  Company Number: US-GLAXOSMITHKLINE-A0887154A

PATIENT
  Age: 63 Year
  Sex: Male

DRUGS (2)
  1. GLUCOVANCE [Concomitant]
  2. AVANDIA [Suspect]
     Indication: DIABETES MELLITUS
     Dosage: 4MG TWICE PER DAY
     Route: 048
     Dates: start: 19991027, end: 20070529

REACTIONS (2)
  - CORONARY ANGIOPLASTY [None]
  - PAIN [None]
